FAERS Safety Report 9113246 (Version 2)
Quarter: 2013Q2

REPORT INFORMATION
  Report Type: Spontaneous
  Country: CO (occurrence: CO)
  Receive Date: 20130211
  Receipt Date: 20130405
  Transmission Date: 20140414
  Serious: Yes (Other)
  Sender: FDA-Public Use
  Company Number: CO-ELI_LILLY_AND_COMPANY-CO201302001300

PATIENT
  Age: 71 Year
  Sex: Female

DRUGS (2)
  1. FORTEO [Suspect]
     Indication: OSTEOPOROSIS
     Dosage: 20MCG, ONCE DAILY
     Route: 058
     Dates: start: 201203
  2. ACETAMINOPHEN [Concomitant]
     Dosage: UNK

REACTIONS (4)
  - Foot fracture [Not Recovered/Not Resolved]
  - Fall [Not Recovered/Not Resolved]
  - Alopecia [Not Recovered/Not Resolved]
  - Eye irritation [Not Recovered/Not Resolved]
